FAERS Safety Report 8617453-5 (Version None)
Quarter: 2012Q3

REPORT INFORMATION
  Report Type: 
  Country: None (occurrence: None)
  Receive Date: 20120824
  Receipt Date: 20111130
  Transmission Date: 20120928
  Serious: No
  Sender: FDA-Public Use
  Company Number: US-ASTRAZENECA-2011SE64318

PATIENT
  Age: 13 Year
  Sex: Female
  Weight: 113.4 kg

DRUGS (12)
  1. SYMBICORT [Suspect]
     Indication: WHEEZING
     Dosage: 1 INHALATION BID
     Route: 055
  2. METFORMIN HCL [Concomitant]
  3. CALCIUM [Concomitant]
  4. SYMBICORT [Suspect]
     Indication: COUGH
     Dosage: 1 INHALATION BID
     Route: 055
  5. OMEPRAZOLE [Concomitant]
  6. BUPROPION HCL [Concomitant]
  7. SPIRONOLACTONE [Concomitant]
  8. PROAIR HFA [Concomitant]
  9. LISINOPRIL [Concomitant]
  10. SINGULAIR [Concomitant]
  11. HYDROCHLOROTHIAZIDE [Concomitant]
  12. VITAMIN D [Concomitant]

REACTIONS (2)
  - GLOSSODYNIA [None]
  - TONGUE DISCOLOURATION [None]
